FAERS Safety Report 9695374 (Version 1)
Quarter: 2013Q4

REPORT INFORMATION
  Report Type: Spontaneous
  Country: US (occurrence: None)
  Receive Date: 20131118
  Receipt Date: 20131118
  Transmission Date: 20140711
  Serious: Yes (Other)
  Sender: FDA-Public Use
  Company Number: None

PATIENT
  Age: 52 Year
  Sex: Male
  Weight: 120.2 kg

DRUGS (1)
  1. EFFEXOR XR [Suspect]
     Indication: ANTIDEPRESSANT THERAPY
     Route: 048
     Dates: start: 20131017, end: 20131022

REACTIONS (6)
  - Product substitution issue [None]
  - Dizziness [None]
  - Dizziness [None]
  - Nausea [None]
  - Vomiting [None]
  - Paraesthesia [None]
